FAERS Safety Report 14078661 (Version 2)
Quarter: 2017Q4

REPORT INFORMATION
  Report Type: Spontaneous
  Country: DE (occurrence: DE)
  Receive Date: 20171012
  Receipt Date: 20171103
  Transmission Date: 20180321
  Serious: Yes (Other)
  Sender: FDA-Public Use
  Company Number: DE-JNJFOC-20171005715

PATIENT
  Sex: Female

DRUGS (2)
  1. REGAINE FRAUEN LOESUNG [Suspect]
     Active Substance: MINOXIDIL
     Route: 065
  2. REGAINE FRAUEN LOESUNG [Suspect]
     Active Substance: MINOXIDIL
     Indication: ALOPECIA
     Route: 065
     Dates: start: 2007

REACTIONS (3)
  - Osteoporosis [Not Recovered/Not Resolved]
  - Thoracic vertebral fracture [Unknown]
  - Alopecia [Recovering/Resolving]
